FAERS Safety Report 5493381-1 (Version None)
Quarter: 2007Q4

REPORT INFORMATION
  Report Type: 
  Country: None (occurrence: None)
  Receive Date: 20071023
  Receipt Date: 20071011
  Transmission Date: 20080405
  Serious: Yes (Other)
  Sender: FDA-Public Use
  Company Number: JP-ROCHE-525634

PATIENT

DRUGS (1)
  1. PEGASYS [Suspect]
     Route: 058
     Dates: start: 20070712, end: 20070921

REACTIONS (1)
  - HEPATIC ENCEPHALOPATHY [None]
